FAERS Safety Report 7676704-4 (Version None)
Quarter: 2011Q3

REPORT INFORMATION
  Report Type: 
  Country: None (occurrence: None)
  Receive Date: 20110811
  Receipt Date: 20110803
  Transmission Date: 20111222
  Serious: Yes (Other)
  Sender: FDA-Public Use
  Company Number: PK-SANOFI-AVENTIS-2011SA049680

PATIENT
  Age: 3 Day
  Weight: 1.5 kg

DRUGS (2)
  1. CLAFORAN [Suspect]
     Indication: SEPSIS NEONATAL
     Route: 042
     Dates: start: 20110730, end: 20110730
  2. TOBRAMYCIN [Concomitant]
     Indication: SEPSIS NEONATAL
     Route: 042
     Dates: start: 20110730, end: 20110730

REACTIONS (3)
  - EXPIRED DRUG ADMINISTERED [None]
  - SEPSIS NEONATAL [None]
  - CONDITION AGGRAVATED [None]
